FAERS Safety Report 24688662 (Version 5)
Quarter: 2025Q2

REPORT INFORMATION
  Report Type: Spontaneous
  Country: US (occurrence: US)
  Receive Date: 20241203
  Receipt Date: 20250402
  Transmission Date: 20250716
  Serious: No
  Sender: UNITED THERAPEUTICS
  Company Number: US-UNITED THERAPEUTICS-UNT-2024-034693

PATIENT
  Sex: Female
  Weight: 66.667 kg

DRUGS (20)
  1. TYVASO DPI [Suspect]
     Active Substance: TREPROSTINIL
     Indication: Pulmonary arterial hypertension
     Dosage: 16 ?G, QID
     Dates: start: 202410, end: 2024
  2. TYVASO DPI [Suspect]
     Active Substance: TREPROSTINIL
     Dosage: 32 ?G, QID
     Dates: start: 2024, end: 2024
  3. TYVASO DPI [Suspect]
     Active Substance: TREPROSTINIL
     Dosage: 16 ?G, QID
     Dates: start: 2024
  4. TYVASO DPI [Suspect]
     Active Substance: TREPROSTINIL
  5. TYVASO DPI [Suspect]
     Active Substance: TREPROSTINIL
     Indication: Pulmonary arterial hypertension
  6. TYVASO DPI [Suspect]
     Active Substance: TREPROSTINIL
     Indication: Pulmonary arterial hypertension
  7. RITUXAN [Suspect]
     Active Substance: RITUXIMAB
     Indication: Product used for unknown indication
  8. FAMOTIDINE [Concomitant]
     Active Substance: FAMOTIDINE
     Indication: Product used for unknown indication
  9. TUMS [Concomitant]
     Active Substance: CALCIUM CARBONATE
     Indication: Product used for unknown indication
  10. PREDNISONE [Concomitant]
     Active Substance: PREDNISONE
     Indication: Product used for unknown indication
  11. MYCOPHENOLATE MOFETIL [Concomitant]
     Active Substance: MYCOPHENOLATE MOFETIL
     Indication: Product used for unknown indication
  12. SULFAMETHOXAZOLE AND TRIMETHOPRIM [Concomitant]
     Active Substance: SULFAMETHOXAZOLE\TRIMETHOPRIM
     Indication: Product used for unknown indication
  13. PROTONIX [Concomitant]
     Active Substance: PANTOPRAZOLE SODIUM
     Indication: Product used for unknown indication
  14. CLONAZEPAM [Concomitant]
     Active Substance: CLONAZEPAM
     Indication: Product used for unknown indication
  15. SUCRALFATE [Concomitant]
     Active Substance: SUCRALFATE
     Indication: Product used for unknown indication
  16. ALBUTEROL SULFATE [Concomitant]
     Active Substance: ALBUTEROL SULFATE
     Indication: Product used for unknown indication
  17. GAVISCON [Concomitant]
     Active Substance: ALUMINUM HYDROXIDE\MAGNESIUM CARBONATE
     Indication: Product used for unknown indication
  18. METOPROLOL SUCCINATE [Concomitant]
     Active Substance: METOPROLOL SUCCINATE
     Indication: Product used for unknown indication
  19. OXYGEN [Concomitant]
     Active Substance: OXYGEN
     Indication: Oxygen saturation decreased
  20. FUROSEMIDE [Concomitant]
     Active Substance: FUROSEMIDE
     Indication: Product used for unknown indication

REACTIONS (12)
  - Blood pressure decreased [Unknown]
  - Heart rate increased [Recovering/Resolving]
  - Oxygen saturation decreased [Recovering/Resolving]
  - Cough [Unknown]
  - Throat irritation [Unknown]
  - Chest pain [Unknown]
  - Dizziness [Unknown]
  - Head discomfort [Unknown]
  - Dyspnoea [Unknown]
  - Flushing [Unknown]
  - Nasal congestion [Unknown]
  - Dyspepsia [Unknown]

NARRATIVE: CASE EVENT DATE: 20240101
